FAERS Safety Report 20322933 (Version 1)
Quarter: 2022Q1

REPORT INFORMATION
  Report Type: Spontaneous
  Country: FR (occurrence: FR)
  Receive Date: 20220111
  Receipt Date: 20220111
  Transmission Date: 20220423
  Serious: Yes (Hospitalization)
  Sender: FDA-Public Use
  Company Number: None

PATIENT
  Age: 91 Year
  Sex: Female
  Weight: 57 kg

DRUGS (2)
  1. CLOPIDOGREL [Suspect]
     Active Substance: CLOPIDOGREL BISULFATE
     Indication: Abdominal compartment syndrome
     Dosage: 1 DOSAGE FORMS DAILY; 1 TAB IN THE MORNING,CLOPIDOGREL HYDROCHLORIDE
     Route: 048
     Dates: start: 20210501, end: 20211104
  2. KARDEGIC [Suspect]
     Active Substance: ASPIRIN DL-LYSINE
     Indication: Abdominal compartment syndrome
     Dosage: 75MG / D, LONG TERM,KARDEGIC 75 MG POWDER FOR ORAL SOLUTION IN SACHET-DOSE,UNIT DOSE:1DF
     Route: 048

REACTIONS (2)
  - Rectal haemorrhage [Recovering/Resolving]
  - Melaena [Recovering/Resolving]

NARRATIVE: CASE EVENT DATE: 20211103
